FAERS Safety Report 9895410 (Version 1)
Quarter: 2014Q1

REPORT INFORMATION
  Report Type: Spontaneous
  Country: US (occurrence: US)
  Receive Date: 20140213
  Receipt Date: 20140213
  Transmission Date: 20141002
  Serious: No
  Sender: FDA-Public Use
  Company Number: US-BRISTOL-MYERS SQUIBB COMPANY-17359613

PATIENT
  Age: 46 Year
  Sex: Female
  Weight: 81.63 kg

DRUGS (3)
  1. ORENCIA [Suspect]
     Indication: RHEUMATOID ARTHRITIS
     Dosage: LAST INF ON 26JAN2013
     Route: 042
     Dates: start: 201210
  2. METHOTREXATE [Concomitant]
     Dates: start: 201209
  3. FOLIC ACID [Concomitant]
     Dates: start: 201209

REACTIONS (1)
  - Alopecia [Unknown]
